FAERS Safety Report 10766810 (Version 1)
Quarter: 2015Q1

REPORT INFORMATION
  Report Type: Spontaneous
  Country: US (occurrence: US)
  Receive Date: 20150205
  Receipt Date: 20150205
  Transmission Date: 20150721
  Serious: Yes (Other)
  Sender: FDA-Public Use
  Company Number: US-PFIZER INC-2015046541

PATIENT
  Sex: Male
  Weight: 81 kg

DRUGS (3)
  1. TOPAMAX [Suspect]
     Active Substance: TOPIRAMATE
     Indication: SEIZURE
     Dosage: 50 MG, 3X/DAY
  2. DILANTIN [Suspect]
     Active Substance: PHENYTOIN
     Indication: SEIZURE
     Dosage: 100 MG, 4X/DAY
  3. PRIMIDONE. [Suspect]
     Active Substance: PRIMIDONE
     Indication: SEIZURE
     Dosage: 250 MG, 2X/DAY

REACTIONS (3)
  - Blood testosterone decreased [Unknown]
  - Frostbite [Unknown]
  - Drug ineffective [Unknown]
